FAERS Safety Report 9463732 (Version 2)
Quarter: 2013Q3

REPORT INFORMATION
  Report Type: Report from Study
  Country: BE (occurrence: BE)
  Receive Date: 20130819
  Receipt Date: 20130822
  Transmission Date: 20140515
  Serious: Yes (Hospitalization)
  Sender: FDA-Public Use
  Company Number: BE-AMGEN-BELCT2013057567

PATIENT
  Age: 68 Year
  Sex: Male

DRUGS (7)
  1. ETANERCEPT [Suspect]
     Indication: RHEUMATOID ARTHRITIS
     Dosage: 25 MG, 2 TIMES/WK
     Route: 058
     Dates: start: 200209, end: 20030514
  2. ETANERCEPT [Suspect]
     Dosage: 25 MG, 2 TIMES/WK
     Route: 058
     Dates: start: 20030715, end: 20030804
  3. CALCIUM [Concomitant]
     Dosage: UNK
     Route: 048
     Dates: start: 200103
  4. CELECOXIB [Concomitant]
     Dosage: UNK
     Route: 048
     Dates: start: 200012
  5. VITAMIN D                          /00107901/ [Concomitant]
     Dosage: UNK
     Route: 048
     Dates: start: 200103
  6. ETIDRONATE DISODIUM [Concomitant]
     Dosage: UNK
     Route: 048
     Dates: start: 200103
  7. PREDNISOLONE [Concomitant]
     Dosage: UNK
     Route: 048
     Dates: start: 1997

REACTIONS (2)
  - Condition aggravated [Recovered/Resolved]
  - Abscess limb [Recovered/Resolved]
